FAERS Safety Report 11201660 (Version 1)
Quarter: 2015Q2

REPORT INFORMATION
  Report Type: Spontaneous
  Country: US (occurrence: None)
  Receive Date: 20150608
  Receipt Date: 20150608
  Transmission Date: 20150821
  Serious: No
  Sender: FDA-Public Use
  Company Number: 2015TUS000942

PATIENT
  Age: 69 Year
  Sex: Female
  Weight: 74.8 kg

DRUGS (6)
  1. LAMOTRIGINE (LAMOTRIGINE) [Concomitant]
     Active Substance: LAMOTRIGINE
  2. DICLOFENAC W/MISOPROSTOL (DICLOFENAC, MISOPROSTOL) [Concomitant]
  3. BRINTELLIX [Suspect]
     Active Substance: VORTIOXETINE HYDROBROMIDE
     Indication: BIPOLAR DISORDER
     Route: 048
     Dates: start: 20141101
  4. TOPIRAMATE (TOPIRAMATE) [Concomitant]
     Active Substance: TOPIRAMATE
  5. IRBESARTAN (IRBESARTAN) [Concomitant]
     Active Substance: IRBESARTAN
  6. AMLODIPINE [Concomitant]
     Active Substance: AMLODIPINE BESYLATE

REACTIONS (3)
  - Erythema [None]
  - Off label use [None]
  - Pruritus [None]

NARRATIVE: CASE EVENT DATE: 201412
